FAERS Safety Report 8570355-5 (Version None)
Quarter: 2012Q3

REPORT INFORMATION
  Report Type: 
  Country: None (occurrence: None)
  Receive Date: 20120803
  Receipt Date: 20120723
  Transmission Date: 20120928
  Serious: Yes (Hospitalization, Other)
  Sender: FDA-Public Use
  Company Number: US-ELI_LILLY_AND_COMPANY-US201005000632

PATIENT
  Sex: Male
  Weight: 99.773 kg

DRUGS (7)
  1. LIPITOR [Concomitant]
     Indication: BLOOD CHOLESTEROL
     Dosage: UNK
  2. METFORMIN HYDROCHLORIDE [Concomitant]
  3. LEVAQUIN [Concomitant]
     Indication: ANTIBIOTIC THERAPY
  4. FUROSEMIDE [Concomitant]
     Indication: DIURETIC THERAPY
  5. AVANDIA [Concomitant]
  6. BENICAR [Concomitant]
     Indication: BLOOD PRESSURE
  7. BYETTA [Suspect]

REACTIONS (4)
  - PANCREATITIS [None]
  - WEIGHT DECREASED [None]
  - MOTOR DYSFUNCTION [None]
  - RENAL FAILURE [None]
